FAERS Safety Report 8401840-4 (Version None)
Quarter: 2012Q2

REPORT INFORMATION
  Report Type: 
  Country: None (occurrence: None)
  Receive Date: 20120601
  Receipt Date: 20120529
  Transmission Date: 20120825
  Serious: Yes (Other)
  Sender: FDA-Public Use
  Company Number: BR-JNJFOC-20120520912

PATIENT
  Age: 60 Year
  Sex: Female
  Weight: 74 kg

DRUGS (3)
  1. FENOFIBRATE [Concomitant]
     Indication: BLOOD TRIGLYCERIDES INCREASED
     Route: 065
     Dates: start: 20070101
  2. ACETAMINOPHEN W/ CODEINE [Suspect]
     Indication: PAIN
     Dosage: 1 TABLET EVERY 8 HOURS
     Route: 048
     Dates: start: 20120513, end: 20120515
  3. OMEPRAZOLE [Concomitant]
     Indication: GASTROOESOPHAGEAL REFLUX DISEASE
     Route: 065
     Dates: start: 20050101

REACTIONS (6)
  - SOMNOLENCE [None]
  - DRY MOUTH [None]
  - MALAISE [None]
  - FEELING ABNORMAL [None]
  - TREMOR [None]
  - NAUSEA [None]
